FAERS Safety Report 17764171 (Version 2)
Quarter: 2020Q2

REPORT INFORMATION
  Report Type: Spontaneous
  Country: IN (occurrence: IN)
  Receive Date: 20200511
  Receipt Date: 20200525
  Transmission Date: 20200714
  Serious: Yes (Death, Other)
  Sender: FDA-Public Use
  Company Number: IN-ROCHE-2596333

PATIENT
  Age: 57 Year
  Sex: Male

DRUGS (8)
  1. MYCOPHENOLATE SODIUM [Suspect]
     Active Substance: MYCOPHENOLATE SODIUM
     Route: 065
     Dates: end: 20180917
  2. PREDNISOLONE. [Suspect]
     Active Substance: PREDNISOLONE
     Route: 065
  3. MYCOPHENOLATE SODIUM [Suspect]
     Active Substance: MYCOPHENOLATE SODIUM
     Indication: IMMUNOSUPPRESSION
     Route: 065
     Dates: start: 2007
  4. PREDNISOLONE. [Suspect]
     Active Substance: PREDNISOLONE
     Route: 048
  5. PREDNISOLONE. [Suspect]
     Active Substance: PREDNISOLONE
     Indication: IMMUNOSUPPRESSION
     Route: 065
     Dates: start: 2007
  6. TACROLIMUS. [Suspect]
     Active Substance: TACROLIMUS
     Indication: IMMUNOSUPPRESSION
     Route: 065
     Dates: start: 2007
  7. TACROLIMUS. [Suspect]
     Active Substance: TACROLIMUS
     Route: 065
     Dates: end: 20180917
  8. INSULIN [Concomitant]
     Active Substance: INSULIN NOS

REACTIONS (8)
  - Cryptococcosis [Unknown]
  - Acinetobacter infection [Unknown]
  - Bacterial infection [Unknown]
  - Septic shock [Fatal]
  - Pneumonia [Unknown]
  - Meningitis [Unknown]
  - Status epilepticus [Unknown]
  - Acute kidney injury [Fatal]
